FAERS Safety Report 24524334 (Version 1)
Quarter: 2024Q4

REPORT INFORMATION
  Report Type: Report from Study
  Country: US (occurrence: US)
  Receive Date: 20241018
  Receipt Date: 20241018
  Transmission Date: 20250115
  Serious: Yes (Hospitalization)
  Sender: TAIHO ONCOLOGY INC
  Company Number: US-TAIHOP-2024-009858

PATIENT
  Age: 61 Year
  Sex: Female
  Weight: 96.6 kg

DRUGS (3)
  1. LYTGOBI [Suspect]
     Active Substance: FUTIBATINIB
     Indication: Cholangiocarcinoma
     Route: 048
     Dates: start: 202303
  2. MIDOL COMPLETE [Concomitant]
     Active Substance: ACETAMINOPHEN\CAFFEINE\PYRILAMINE MALEATE
     Indication: Product used for unknown indication
  3. FLONASE ALLERGY RELIEF [Concomitant]
     Active Substance: FLUTICASONE PROPIONATE
     Indication: Product used for unknown indication

REACTIONS (2)
  - Infection [Unknown]
  - Lymphoedema [Unknown]
